FAERS Safety Report 21797062 (Version 4)
Quarter: 2024Q1

REPORT INFORMATION
  Report Type: Spontaneous
  Country: ES (occurrence: ES)
  Receive Date: 20221230
  Receipt Date: 20240328
  Transmission Date: 20240410
  Serious: Yes (Hospitalization, Other)
  Sender: FDA-Public Use
  Company Number: ES-ABBVIE-4187536

PATIENT
  Sex: Male

DRUGS (19)
  1. VENETOCLAX [Suspect]
     Active Substance: VENETOCLAX
     Indication: Prolymphocytic leukaemia
     Route: 048
  2. VENETOCLAX [Suspect]
     Active Substance: VENETOCLAX
     Indication: Prolymphocytic leukaemia
     Route: 048
     Dates: start: 20221011, end: 20221018
  3. VENETOCLAX [Suspect]
     Active Substance: VENETOCLAX
     Indication: Prolymphocytic leukaemia
     Route: 048
     Dates: start: 20220126, end: 2022
  4. RITUXIMAB [Suspect]
     Active Substance: RITUXIMAB
     Indication: Product used for unknown indication
     Route: 065
  5. IMBRUVICA [Suspect]
     Active Substance: IBRUTINIB
     Indication: Product used for unknown indication
     Route: 048
  6. FERBISOL [Concomitant]
     Indication: Product used for unknown indication
  7. SULFAMETHOXAZOLE\TRIMETHOPRIM [Concomitant]
     Active Substance: SULFAMETHOXAZOLE\TRIMETHOPRIM
     Indication: Product used for unknown indication
     Dosage: 800/160 MG
  8. ACYCLOVIR [Concomitant]
     Active Substance: ACYCLOVIR
     Indication: Product used for unknown indication
  9. POTASSIUM [Concomitant]
     Active Substance: POTASSIUM
     Indication: Product used for unknown indication
  10. AMLODIPINE [Concomitant]
     Active Substance: AMLODIPINE BESYLATE
     Indication: Hypertension
  11. FENOFIBRATE [Concomitant]
     Active Substance: FENOFIBRATE
     Indication: Product used for unknown indication
  12. VALSARTAN [Concomitant]
     Active Substance: VALSARTAN
     Indication: Product used for unknown indication
  13. FOLIC ACID [Concomitant]
     Active Substance: FOLIC ACID
     Indication: Product used for unknown indication
  14. TENOFOVIR [Concomitant]
     Active Substance: TENOFOVIR
     Indication: Product used for unknown indication
  15. KONAKION [Concomitant]
     Active Substance: PHYTONADIONE
     Indication: Blood potassium
  16. IPRATROPIUM BROMIDE [Concomitant]
     Active Substance: IPRATROPIUM BROMIDE\IPRATROPIUM BROMIDE ANHYDROUS
     Indication: Product used for unknown indication
  17. TAMSULOSIN [Concomitant]
     Active Substance: TAMSULOSIN
     Indication: Product used for unknown indication
  18. OMEPRAZOLE [Concomitant]
     Active Substance: OMEPRAZOLE
     Indication: Product used for unknown indication
  19. CEFDITOREN [Concomitant]
     Active Substance: CEFDITOREN
     Indication: Product used for unknown indication

REACTIONS (33)
  - Pneumonitis [Unknown]
  - Pyrexia [Unknown]
  - SARS-CoV-2 test positive [Unknown]
  - Off label use [Unknown]
  - Adrenal adenoma [Unknown]
  - Mesenteric panniculitis [Unknown]
  - Weight decreased [Unknown]
  - Large intestine polyp [Unknown]
  - Vomiting [Unknown]
  - Dysphagia [Unknown]
  - Hypokalaemia [Unknown]
  - Renal cyst [Unknown]
  - Aortic arteriosclerosis [Unknown]
  - Feeling abnormal [Unknown]
  - Prostatitis [Unknown]
  - COVID-19 [Unknown]
  - Benign prostatic hyperplasia [Unknown]
  - Cough [Recovering/Resolving]
  - Atelectasis [Unknown]
  - Pyrexia [Recovered/Resolved]
  - Left ventricular hypertrophy [Unknown]
  - Headache [Unknown]
  - Abdominal pain upper [Unknown]
  - Arteriosclerosis coronary artery [Unknown]
  - Neutropenia [Unknown]
  - Pain in extremity [Unknown]
  - Pneumonitis [Recovered/Resolved with Sequelae]
  - Malaise [Unknown]
  - Rectal abscess [Unknown]
  - Diarrhoea [Unknown]
  - Hypophosphataemia [Unknown]
  - Nausea [Unknown]
  - Asthenia [Unknown]

NARRATIVE: CASE EVENT DATE: 20220101
